FAERS Safety Report 11807691 (Version 1)
Quarter: 2015Q4

REPORT INFORMATION
  Report Type: Spontaneous
  Country: US (occurrence: US)
  Receive Date: 20151207
  Receipt Date: 20151207
  Transmission Date: 20160305
  Serious: Yes (Other)
  Sender: FDA-Public Use
  Company Number: US-IMPAX LABORATORIES, INC-2015-IPXL-01217

PATIENT
  Age: 17 Year
  Sex: Female

DRUGS (1)
  1. MINOCYCLINE\MINOCYCLINE HYDROCHLORIDE [Suspect]
     Active Substance: MINOCYCLINE\MINOCYCLINE HYDROCHLORIDE
     Indication: ACNE
     Route: 065

REACTIONS (4)
  - Brain stem infarction [Unknown]
  - Dizziness [Unknown]
  - Vasculitis necrotising [Unknown]
  - Neuropathy peripheral [Unknown]
